FAERS Safety Report 6679216-X (Version None)
Quarter: 2010Q2

REPORT INFORMATION
  Report Type: 
  Country: None (occurrence: None)
  Receive Date: 20100413
  Receipt Date: 20100406
  Transmission Date: 20101027
  Serious: Yes (Hospitalization)
  Sender: FDA-Public Use
  Company Number: CH-BAYER-201021032GPV

PATIENT
  Age: 51 Year
  Sex: Female

DRUGS (3)
  1. CIPROXIN [Suspect]
     Indication: CYSTITIS
     Dosage: TOTAL DAILY DOSE: 1000 MG  UNIT DOSE: 500 MG
     Route: 048
     Dates: start: 20100128, end: 20100129
  2. PANTOPRAZOLE SODIUM [Concomitant]
     Indication: DRUG USE FOR UNKNOWN INDICATION
     Dosage: TOTAL DAILY DOSE: 20 MG  UNIT DOSE: 20 MG
     Route: 048
     Dates: start: 20100112
  3. INDIVINA [Concomitant]
     Indication: DRUG USE FOR UNKNOWN INDICATION
     Route: 048
     Dates: start: 20080101

REACTIONS (10)
  - ABDOMINAL PAIN [None]
  - C-REACTIVE PROTEIN INCREASED [None]
  - DYSPNOEA [None]
  - HYPOGLYCAEMIA [None]
  - HYPONATRAEMIA [None]
  - NAUSEA [None]
  - PNEUMONIA [None]
  - PNEUMONITIS [None]
  - SOMNOLENCE [None]
  - VOMITING [None]
